FAERS Safety Report 13020151 (Version 2)
Quarter: 2017Q1

REPORT INFORMATION
  Report Type: Spontaneous
  Country: US (occurrence: US)
  Receive Date: 20161212
  Receipt Date: 20170317
  Transmission Date: 20170428
  Serious: No
  Sender: FDA-Public Use
  Company Number: US-ENDO PHARMACEUTICALS INC.-2016-007103

PATIENT
  Age: 45 Year
  Sex: Male

DRUGS (1)
  1. AVEED [Suspect]
     Active Substance: TESTOSTERONE UNDECANOATE
     Indication: PRODUCT USED FOR UNKNOWN INDICATION
     Dosage: EVERY 10 WEEKS
     Route: 030

REACTIONS (3)
  - Blood testosterone decreased [Unknown]
  - Drug effect decreased [Unknown]
  - Pruritus [Unknown]
